FAERS Safety Report 16742349 (Version 1)
Quarter: 2019Q3

REPORT INFORMATION
  Report Type: Report from Study
  Country: US (occurrence: US)
  Receive Date: 20190826
  Receipt Date: 20190826
  Transmission Date: 20191005
  Serious: No
  Sender: FDA-Public Use
  Company Number: US-DOVA PHARMACEUTICALS INC.-DOV-000304

PATIENT
  Sex: Male

DRUGS (1)
  1. DOPTELET [Suspect]
     Active Substance: AVATROMBOPAG MALEATE
     Indication: CHRONIC HEPATITIS C
     Dosage: 40 MG, QD
     Route: 048
     Dates: start: 20190616, end: 20190620

REACTIONS (1)
  - Fatigue [Unknown]
